FAERS Safety Report 8426160-3 (Version None)
Quarter: 2012Q2

REPORT INFORMATION
  Report Type: 
  Country: None (occurrence: None)
  Receive Date: 20120323
  Receipt Date: 20110209
  Transmission Date: 20120825
  Serious: Yes (Other)
  Sender: FDA-Public Use
  Company Number: 163-21880-11021566

PATIENT
  Age: 76 Year
  Sex: Male

DRUGS (6)
  1. ASPIRIN [Concomitant]
  2. ISOSORBIDE MONONITRATE [Concomitant]
  3. DEXAMETHASONE [Concomitant]
  4. ATENOLOL [Concomitant]
  5. OMEPRAZOLE [Concomitant]
  6. REVLIMID [Suspect]
     Indication: MULTIPLE MYELOMA
     Dosage: 15 MG, DAILY FOR 21 DAYS THEN OFF FOR 7 DAYS, PO
     Route: 048
     Dates: start: 20090901

REACTIONS (1)
  - DEEP VEIN THROMBOSIS [None]
